FAERS Safety Report 15360948 (Version 1)
Quarter: 2018Q3

REPORT INFORMATION
  Report Type: Spontaneous
  Country: US (occurrence: US)
  Receive Date: 20180907
  Receipt Date: 20180907
  Transmission Date: 20181010
  Serious: No
  Sender: FDA-Public Use
  Company Number: US-SA-2018SA248491

PATIENT
  Age: 64 Year
  Sex: Male

DRUGS (2)
  1. PRALUENT [Suspect]
     Active Substance: ALIROCUMAB
     Dosage: 150 MG, QOW
     Route: 058
     Dates: start: 20180813
  2. ALIROCUMAB PREFILLED PEN [Suspect]
     Active Substance: ALIROCUMAB
     Dosage: 150 MG, QOW
     Route: 058
     Dates: start: 20180813

REACTIONS (4)
  - Impaired work ability [Unknown]
  - Pain in extremity [Unknown]
  - Pain in extremity [Recovering/Resolving]
  - Muscle spasms [Unknown]

NARRATIVE: CASE EVENT DATE: 20180829
